FAERS Safety Report 7320474-6 (Version None)
Quarter: 2011Q1

REPORT INFORMATION
  Report Type: 
  Country: None (occurrence: None)
  Receive Date: 20110228
  Receipt Date: 20110215
  Transmission Date: 20110831
  Serious: Yes (Other)
  Sender: FDA-Public Use
  Company Number: B0701944A

PATIENT

DRUGS (5)
  1. SPIRONOLACTONE [Concomitant]
     Indication: ASCITES
     Route: 048
  2. ALBUMIN (HUMAN) [Concomitant]
     Indication: ASCITES
     Route: 048
  3. CEFTAZIDIME [Suspect]
     Indication: PERITONITIS
     Dosage: 2G TWICE PER DAY
     Route: 042
  4. FUROSEMIDE [Concomitant]
     Indication: ASCITES
     Route: 065
  5. GLUTATHIONE [Concomitant]
     Indication: HEPATIC CIRRHOSIS
     Route: 065

REACTIONS (4)
  - AGITATION [None]
  - MENTAL DISORDER [None]
  - DELIRIUM [None]
  - CONVULSION [None]
